FAERS Safety Report 5734292-3 (Version None)
Quarter: 2008Q2

REPORT INFORMATION
  Report Type: 
  Country: None (occurrence: None)
  Receive Date: 20080507
  Receipt Date: 20080422
  Transmission Date: 20081010
  Serious: Yes (Other)
  Sender: FDA-Public Use
  Company Number: 8030642

PATIENT
  Age: 7 Year
  Sex: Female

DRUGS (2)
  1. METHYLPHENIDATE HCL [Suspect]
     Indication: ATTENTION DEFICIT/HYPERACTIVITY DISORDER
     Dosage: 20 MG /D
     Dates: start: 20070703, end: 20080221
  2. LEUPROLIDE ACETATE [Suspect]
     Indication: GIGANTISM
     Dates: start: 20060101

REACTIONS (2)
  - DRUG INTERACTION [None]
  - EDUCATIONAL PROBLEM [None]
